FAERS Safety Report 9610689 (Version 5)
Quarter: 2016Q2

REPORT INFORMATION
  Report Type: Report from Study
  Country: JP (occurrence: JP)
  Receive Date: 20131009
  Receipt Date: 20160613
  Transmission Date: 20160815
  Serious: Yes (Death, Life-Threatening, Disabling)
  Sender: FDA-Public Use
  Company Number: JP-SA-2013SA100133

PATIENT
  Sex: Male
  Weight: 65 kg

DRUGS (27)
  1. ALTAT [Concomitant]
     Indication: PROPHYLAXIS AGAINST GASTROINTESTINAL ULCER
     Dates: start: 20110314, end: 20110624
  2. CONIEL [Concomitant]
     Active Substance: BENIDIPINE HYDROCHLORIDE
     Indication: HYPERTENSION
     Dates: start: 20110825, end: 20110930
  3. NEORAL [Concomitant]
     Active Substance: CYCLOSPORINE
     Indication: APLASTIC ANAEMIA
     Dates: start: 20110301, end: 20110828
  4. SEIBULE [Concomitant]
     Active Substance: MIGLITOL
     Indication: DIABETES MELLITUS
     Dates: start: 20110825, end: 20110930
  5. DEFERASIROX [Concomitant]
     Active Substance: DEFERASIROX
     Indication: IRON OVERLOAD
     Dates: start: 20110609, end: 20110930
  6. PURSENNID [Concomitant]
     Active Substance: SENNOSIDES A AND B
     Indication: CONSTIPATION
     Dates: start: 20110501, end: 20110924
  7. FAMOTIDINE. [Concomitant]
     Active Substance: FAMOTIDINE
     Indication: PROPHYLAXIS AGAINST GASTROINTESTINAL ULCER
     Dates: start: 20110628, end: 20110930
  8. JANUVIA [Concomitant]
     Active Substance: SITAGLIPTIN PHOSPHATE
     Indication: DIABETES MELLITUS
     Dates: start: 20110801, end: 20110930
  9. METGLUCO [Concomitant]
     Active Substance: METFORMIN HYDROCHLORIDE
     Indication: DIABETES MELLITUS
     Dates: start: 20110628, end: 20110930
  10. VALTREX [Concomitant]
     Active Substance: VALACYCLOVIR HYDROCHLORIDE
     Indication: INFECTION PROPHYLAXIS
     Dates: start: 20110315, end: 20110726
  11. CINAL [Concomitant]
     Active Substance: ASCORBIC ACID\CALCIUM PANTOTHENATE
     Indication: HAEMORRHAGE SUBCUTANEOUS
     Dates: start: 20110301, end: 20110930
  12. CYCLOSPORINE. [Concomitant]
     Active Substance: CYCLOSPORINE
  13. THYMOGLOBULINE [Suspect]
     Active Substance: LAPINE T-LYMPHOCYTE IMMUNE GLOBULIN
     Indication: APLASTIC ANAEMIA
     Dosage: ON 14-MAR-2011, THE INITIAL DOSE OF THYMOGLOBULINE AT 225.5 MG WAS ADMINISTERED OVER 18 HOURS
     Route: 042
     Dates: start: 20110314, end: 20110318
  14. PRIMOBOLAN-DEPOT [Concomitant]
     Active Substance: METHENOLONE ENANTHATE
     Indication: APLASTIC ANAEMIA
     Dates: start: 20110825, end: 20110930
  15. PREDNISOLONE. [Concomitant]
     Active Substance: PREDNISOLONE
     Indication: APLASTIC ANAEMIA
     Dates: start: 20110405, end: 20110603
  16. IRBETAN [Concomitant]
     Active Substance: IRBESARTAN
     Indication: HYPERTENSION
     Dates: start: 20110801, end: 20110930
  17. MEDET [Concomitant]
     Active Substance: METFORMIN HYDROCHLORIDE
     Indication: DIABETES MELLITUS
     Dates: start: 20110301, end: 20110624
  18. LIMAPROST ALFADEX [Concomitant]
     Active Substance: LIMAPROST
     Indication: THROMBOANGIITIS OBLITERANS
     Dates: start: 20110301, end: 20110930
  19. ADONA [Concomitant]
     Active Substance: CARBAZOCHROME SODIUM SULFONATE
     Indication: APLASTIC ANAEMIA
     Dates: start: 20110301, end: 20110624
  20. GLACTIV [Concomitant]
     Active Substance: SITAGLIPTIN
     Indication: DIABETES MELLITUS
     Dates: start: 20110301, end: 20110731
  21. SELBEX [Concomitant]
     Active Substance: TEPRENONE
     Indication: GASTRITIS PROPHYLAXIS
     Dates: start: 20110420, end: 20110525
  22. CRAVIT [Concomitant]
     Active Substance: LEVOFLOXACIN
     Indication: INFECTION PROPHYLAXIS
     Dates: start: 20110311, end: 20110710
  23. ACETAMINOPHEN W/CAFF./PROMETHAZINE/SALICYLAM. [Concomitant]
     Indication: NASOPHARYNGITIS
     Dates: start: 20110525, end: 20110528
  24. VIGAMOX [Concomitant]
     Active Substance: MOXIFLOXACIN HYDROCHLORIDE
     Indication: CONJUNCTIVITIS
     Dates: start: 20110307, end: 20110915
  25. FLUMETHOLON [Concomitant]
     Active Substance: FLUOROMETHOLONE
     Indication: CONJUNCTIVITIS
     Dosage: STRENGTH: 0.1%
     Dates: start: 20110829, end: 20110915
  26. POVIDONE IODINE/POVIDONE [Concomitant]
     Dosage: STRENGTH: 7%
     Dates: start: 20110305, end: 20110305
  27. BETAMETHASONE SODIUM PHOSPHATE [Concomitant]
     Active Substance: BETAMETHASONE SODIUM PHOSPHATE
     Indication: CONJUNCTIVITIS
     Dates: start: 20110625, end: 20110806

REACTIONS (9)
  - Cardiac failure [Not Recovered/Not Resolved]
  - Diabetic nephropathy [Not Recovered/Not Resolved]
  - Pleural effusion [Fatal]
  - Glaucoma [Not Recovered/Not Resolved]
  - Generalised oedema [Not Recovered/Not Resolved]
  - Ascites [Fatal]
  - Diabetic retinopathy [Fatal]
  - Hepatic failure [Fatal]
  - Retinal haemorrhage [Not Recovered/Not Resolved]

NARRATIVE: CASE EVENT DATE: 2011
